FAERS Safety Report 15993223 (Version 1)
Quarter: 2019Q1

REPORT INFORMATION
  Report Type: Spontaneous
  Country: GB (occurrence: GB)
  Receive Date: 20190222
  Receipt Date: 20190222
  Transmission Date: 20190418
  Serious: Yes (Other)
  Sender: FDA-Public Use
  Company Number: GB-AUROBINDO-AUR-APL-2019-009003

PATIENT

DRUGS (6)
  1. CITALOPRAM FILM-COATED TABLET [Suspect]
     Active Substance: CITALOPRAM HYDROBROMIDE
     Indication: ANXIETY
     Dosage: 10 MILLIGRAM, DAILY
     Route: 048
     Dates: start: 20170911, end: 20181130
  2. EPILIM [Concomitant]
     Active Substance: VALPROATE SODIUM
     Indication: EPILEPSY
     Dosage: UNK
     Route: 065
  3. MIRTAZAPINE. [Concomitant]
     Active Substance: MIRTAZAPINE
     Indication: ANXIETY
     Dosage: UNK, PRESCRIBED AS ONE-OFF
     Route: 065
  4. SERTRALINE [Concomitant]
     Active Substance: SERTRALINE HYDROCHLORIDE
     Indication: ANXIETY
     Dosage: UNK, PRESCRIBED AS ONE-OFF
     Route: 065
  5. CLOBAZAM. [Concomitant]
     Active Substance: CLOBAZAM
     Indication: EPILEPSY
     Dosage: UNK
     Route: 065
  6. PROPRANOLOL [Concomitant]
     Active Substance: PROPRANOLOL HYDROCHLORIDE
     Indication: ANXIETY
     Dosage: UNK, PRESCRIBED AS ONE-OFF
     Route: 065

REACTIONS (2)
  - Erectile dysfunction [Not Recovered/Not Resolved]
  - Ejaculation failure [Not Recovered/Not Resolved]

NARRATIVE: CASE EVENT DATE: 20170918
